FAERS Safety Report 24325255 (Version 1)
Quarter: 2024Q3

REPORT INFORMATION
  Report Type: Spontaneous
  Country: US (occurrence: US)
  Receive Date: 20240916
  Receipt Date: 20240916
  Transmission Date: 20241016
  Serious: Yes (Other)
  Sender: KVK-TECH
  Company Number: US-KVK-TECH, INC-20240900129

PATIENT

DRUGS (1)
  1. PHENTERMINE HYDROCHLORIDE [Suspect]
     Active Substance: PHENTERMINE HYDROCHLORIDE
     Indication: Weight control
     Dosage: 37.5 MILLIGRAM, QD
     Route: 065

REACTIONS (1)
  - Retinal artery occlusion [Recovered/Resolved]
